FAERS Safety Report 26125117 (Version 1)
Quarter: 2025Q4

REPORT INFORMATION
  Report Type: Spontaneous
  Country: US (occurrence: None)
  Receive Date: 20251205
  Receipt Date: 20251205
  Transmission Date: 20260117
  Serious: Yes (Hospitalization, Other)
  Sender: APOTEX
  Company Number: US-APOTEX-2025AP033292

PATIENT
  Age: 79 Year
  Sex: Male

DRUGS (4)
  1. DIPHENHYDRAMINE [Suspect]
     Active Substance: DIPHENHYDRAMINE
     Indication: Product used for unknown indication
     Dosage: 1,000?1,500 MG (15.6?23.4 MG/KG)
  2. CARBIDOPA\LEVODOPA [Concomitant]
     Active Substance: CARBIDOPA\LEVODOPA
     Indication: Product used for unknown indication
     Dosage: UNK
     Route: 065
  3. FUROSEMIDE [Concomitant]
     Active Substance: FUROSEMIDE
     Indication: Product used for unknown indication
     Dosage: UNK
     Route: 065
  4. EMPAGLIFLOZIN [Concomitant]
     Active Substance: EMPAGLIFLOZIN
     Indication: Product used for unknown indication
     Dosage: UNK
     Route: 065

REACTIONS (6)
  - Electrocardiogram QT prolonged [Recovered/Resolved]
  - Intentional overdose [Recovered/Resolved]
  - Hyperhidrosis [Recovered/Resolved]
  - Bundle branch block bilateral [Recovered/Resolved]
  - Agitation [Recovered/Resolved]
  - Flushing [Recovered/Resolved]
